FAERS Safety Report 23048060 (Version 1)
Quarter: 2023Q4

REPORT INFORMATION
  Report Type: Spontaneous
  Country: US (occurrence: US)
  Receive Date: 20231010
  Receipt Date: 20231010
  Transmission Date: 20240110
  Serious: Yes (Other)
  Sender: FDA-Public Use
  Company Number: US-SUN PHARMACEUTICAL INDUSTRIES LTD-2023R1-377395

PATIENT
  Age: 57 Year
  Sex: Female

DRUGS (2)
  1. CEQUA [Suspect]
     Active Substance: CYCLOSPORINE
     Indication: Dry eye
     Dosage: 1 DROP OUT OF THE 60-DOSE SINGLE VIAL LAST NIGHT
     Route: 047
  2. CEQUA [Suspect]
     Active Substance: CYCLOSPORINE
     Dosage: UNK, BID DU
     Route: 047
     Dates: start: 20230126, end: 20230126

REACTIONS (5)
  - Eye irritation [Recovering/Resolving]
  - Eye swelling [Recovering/Resolving]
  - Dysphagia [Recovering/Resolving]
  - Ocular hyperaemia [Recovering/Resolving]
  - Pharyngeal swelling [Recovering/Resolving]

NARRATIVE: CASE EVENT DATE: 20230126
